FAERS Safety Report 11709355 (Version 2)
Quarter: 2015Q4

REPORT INFORMATION
  Report Type: Spontaneous
  Country: US (occurrence: US)
  Receive Date: 20151104
  Receipt Date: 20151110
  Transmission Date: 20160304
  Serious: No
  Sender: FDA-Public Use
  Company Number: US-ELI_LILLY_AND_COMPANY-US201102000064

PATIENT
  Age: 68 Year
  Sex: Female

DRUGS (2)
  1. FORTEO [Suspect]
     Active Substance: TERIPARATIDE
     Indication: OSTEOPOROSIS
     Dosage: 20 UG, QD
     Route: 065
     Dates: start: 201010
  2. FORTEO [Suspect]
     Active Substance: TERIPARATIDE
     Dosage: 20 UG, QD
     Route: 065

REACTIONS (18)
  - Bone disorder [Unknown]
  - Pain in extremity [Unknown]
  - Dizziness postural [Unknown]
  - Limb injury [Unknown]
  - Influenza [Unknown]
  - Arthritis [Unknown]
  - Jaw disorder [Unknown]
  - Tooth disorder [Unknown]
  - Headache [Unknown]
  - Muscle spasms [Unknown]
  - Enteral nutrition [Not Recovered/Not Resolved]
  - Malaise [Unknown]
  - Nausea [Unknown]
  - Injection site erythema [Unknown]
  - Gingival disorder [Unknown]
  - Back pain [Unknown]
  - Neck pain [Unknown]
  - Arthralgia [Unknown]

NARRATIVE: CASE EVENT DATE: 20110201
